FAERS Safety Report 9848821 (Version 1)
Quarter: 2014Q1

REPORT INFORMATION
  Report Type: Spontaneous
  Country: US (occurrence: None)
  Receive Date: 20140124
  Receipt Date: 20140124
  Transmission Date: 20141002
  Serious: Yes (Other)
  Sender: FDA-Public Use
  Company Number: None

PATIENT
  Age: 56 Year
  Sex: Male
  Weight: 72.58 kg

DRUGS (7)
  1. IBANDRONATE [Suspect]
     Indication: OSTEOPOROSIS
     Dosage: 1 MONTHLY ORAL
     Route: 048
     Dates: start: 20120508, end: 20140121
  2. OLANZAPINE [Concomitant]
  3. RISPERIDONE CONSTA [Concomitant]
  4. FLUOXETINE [Concomitant]
  5. PARATHRYROID HORME [Concomitant]
  6. VITAMIN D AND CALCIUM WNL [Concomitant]
  7. PROLACTIN [Concomitant]

REACTIONS (3)
  - Pain in extremity [None]
  - Stress fracture [None]
  - Arthralgia [None]
